FAERS Safety Report 11157695 (Version 1)
Quarter: 2015Q2

REPORT INFORMATION
  Report Type: Spontaneous
  Country: DE (occurrence: DE)
  Receive Date: 20150603
  Receipt Date: 20150603
  Transmission Date: 20150821
  Serious: Yes (Hospitalization)
  Sender: FDA-Public Use
  Company Number: DE-009507513-1501DEU002446

PATIENT
  Age: 4 Year
  Sex: Male
  Weight: 25 kg

DRUGS (2)
  1. ESMERON 10 MG/ML [Suspect]
     Active Substance: ROCURONIUM BROMIDE
     Indication: SURGERY
     Dosage: 15 MG, ONCE
     Route: 058
     Dates: start: 20150108, end: 20150108
  2. ESMERON 10 MG/ML [Suspect]
     Active Substance: ROCURONIUM BROMIDE
     Dosage: 20 MG, ONCE
     Route: 042
     Dates: start: 20150108, end: 20150108

REACTIONS (2)
  - No adverse event [Unknown]
  - Incorrect route of drug administration [Unknown]

NARRATIVE: CASE EVENT DATE: 2015
